FAERS Safety Report 6702036-4 (Version None)
Quarter: 2010Q2

REPORT INFORMATION
  Report Type: 
  Country: None (occurrence: None)
  Receive Date: 20100429
  Receipt Date: 20100420
  Transmission Date: 20101027
  Serious: Yes (Other)
  Sender: FDA-Public Use
  Company Number: US-PFIZER INC-2010050454

PATIENT
  Sex: Female

DRUGS (2)
  1. GABAPENTIN [Suspect]
     Dosage: 300 MG, UNK
  2. GABAPENTIN [Suspect]
     Dosage: UNK

REACTIONS (3)
  - HYPOAESTHESIA [None]
  - HYPOKINESIA [None]
  - VISUAL IMPAIRMENT [None]
